FAERS Safety Report 8129273-9 (Version None)
Quarter: 2012Q1

REPORT INFORMATION
  Report Type: 
  Country: None (occurrence: None)
  Receive Date: 20120210
  Receipt Date: 20111128
  Transmission Date: 20120608
  Serious: No
  Sender: FDA-Public Use
  Company Number: US-BRISTOL-MYERS SQUIBB COMPANY-16252108

PATIENT
  Age: 90 Year
  Sex: Female

DRUGS (9)
  1. CALCIUM [Concomitant]
  2. METHOTREXATE [Concomitant]
  3. ACETAMINOPHEN [Concomitant]
  4. EFFEXOR [Concomitant]
  5. PLAVIX [Concomitant]
  6. ORENCIA [Suspect]
     Indication: RHEUMATOID ARTHRITIS
     Dosage: LAST DOSE:17NOV2011 THERAPY DURATION:20 PLUS YEARS
     Route: 042
  7. VITAMIN TAB [Concomitant]
  8. TEMAZEPAM [Concomitant]
  9. NAPROXEN (ALEVE) [Concomitant]

REACTIONS (3)
  - FATIGUE [None]
  - RHEUMATOID ARTHRITIS [None]
  - COUGH [None]
